FAERS Safety Report 8850683 (Version 1)
Quarter: 2012Q4

REPORT INFORMATION
  Report Type: Report from Study
  Country: US (occurrence: US)
  Receive Date: 20121019
  Receipt Date: 20121019
  Transmission Date: 20130627
  Serious: Yes (Other)
  Sender: FDA-Public Use
  Company Number: US-JNJFOC-20121008960

PATIENT
  Age: 41 Year

DRUGS (3)
  1. SIMPONI [Suspect]
     Indication: PRODUCT USED FOR UNKNOWN INDICATION
     Route: 058
     Dates: start: 2012
  2. VITAMIN [Concomitant]
  3. OMEGA VITAMIN [Concomitant]

REACTIONS (3)
  - Skin disorder [Unknown]
  - Arthropathy [Unknown]
  - Drug ineffective [Unknown]
